FAERS Safety Report 10244933 (Version 1)
Quarter: 2014Q2

REPORT INFORMATION
  Report Type: Spontaneous
  Country: US (occurrence: US)
  Receive Date: 20140618
  Receipt Date: 20140618
  Transmission Date: 20141212
  Serious: No
  Sender: FDA-Public Use
  Company Number: US-GALDERMA-US14000997

PATIENT
  Age: 31 Year
  Sex: Female

DRUGS (7)
  1. MIRVASO (BRIMONIDINE) TOPICAL GEL, 0.33% [Suspect]
     Indication: FLUSHING
     Dosage: 0.33%
     Route: 061
     Dates: start: 20140306, end: 20140307
  2. MIRVASO (BRIMONIDINE) TOPICAL GEL, 0.33% [Suspect]
     Dosage: 0.33%
     Route: 061
     Dates: start: 20140311, end: 20140312
  3. NEUTROGENA CLEANSER [Concomitant]
     Route: 061
  4. KORRES MILK SOAP [Concomitant]
     Route: 061
  5. CERAVE MOISTURIZER WITH SUNSCREEN [Concomitant]
     Route: 061
  6. MINERAL FOUNDATION [Concomitant]
     Route: 061
  7. AMITRIPTYLINE [Concomitant]
     Indication: CYSTITIS INTERSTITIAL
     Dosage: 25 MG
     Route: 048
     Dates: start: 2012

REACTIONS (13)
  - Rebound effect [Recovering/Resolving]
  - Condition aggravated [Recovering/Resolving]
  - Feeling hot [Recovering/Resolving]
  - Dizziness [Recovering/Resolving]
  - Pallor [Recovered/Resolved]
  - Emotional distress [Recovering/Resolving]
  - Rash macular [Recovering/Resolving]
  - Anxiety [Recovering/Resolving]
  - Chemical injury [Recovering/Resolving]
  - Flushing [Recovering/Resolving]
  - Pain of skin [Recovering/Resolving]
  - Erythema [Recovering/Resolving]
  - Off label use [Recovered/Resolved]
